FAERS Safety Report 5966818-9 (Version None)
Quarter: 2008Q4

REPORT INFORMATION
  Report Type: 
  Country: None (occurrence: None)
  Receive Date: 20081125
  Receipt Date: 20081119
  Transmission Date: 20090506
  Serious: Yes (Other)
  Sender: FDA-Public Use
  Company Number: US-B.I. PHARMACEUTICALS,INC./RIDGEFIELD-2008-BP-17574PF

PATIENT
  Sex: Female
  Weight: 107 kg

DRUGS (6)
  1. SPIRIVA [Suspect]
     Indication: DYSPNOEA
     Dates: start: 20081019, end: 20081114
  2. CHANTIX [Suspect]
     Indication: SMOKING CESSATION THERAPY
     Dosage: .5MG
     Dates: start: 20081007, end: 20081101
  3. ALBUTEROL [Concomitant]
  4. VITAMIN B COMPLEX CAP [Concomitant]
  5. B 12 SHOT [Concomitant]
     Indication: VITAMIN B12 DEFICIENCY
  6. UNSPECIFIED MEDICATIONS [Concomitant]

REACTIONS (18)
  - ABNORMAL DREAMS [None]
  - AGGRESSION [None]
  - ANGER [None]
  - ASTHMA [None]
  - CHEST DISCOMFORT [None]
  - CHEST PAIN [None]
  - DEPRESSION [None]
  - DYSPNOEA [None]
  - ECHOCARDIOGRAM [None]
  - EMOTIONAL DISORDER [None]
  - FEELING ABNORMAL [None]
  - INSOMNIA [None]
  - MENIERE'S DISEASE [None]
  - NAUSEA [None]
  - PANIC DISORDER [None]
  - SLEEP DISORDER [None]
  - TOBACCO USER [None]
  - VOMITING [None]
